FAERS Safety Report 8223484-X (Version None)
Quarter: 2012Q1

REPORT INFORMATION
  Report Type: 
  Country: None (occurrence: None)
  Receive Date: 20120321
  Receipt Date: 20120309
  Transmission Date: 20120608
  Serious: Yes (Life-Threatening, Hospitalization, Other)
  Sender: FDA-Public Use
  Company Number: US-ELI_LILLY_AND_COMPANY-US201111009073

PATIENT
  Sex: Female

DRUGS (6)
  1. ZOLOFT [Concomitant]
  2. AMOXICILLIN [Concomitant]
  3. ARICEPT [Concomitant]
  4. CALCIUM CARBONATE [Concomitant]
  5. FORTEO [Suspect]
     Indication: OSTEOPOROSIS
     Dosage: 20 UG, QD
     Route: 065
  6. NAMENDA [Concomitant]

REACTIONS (14)
  - INFECTION [None]
  - GENERAL PHYSICAL HEALTH DETERIORATION [None]
  - SUTURE RELATED COMPLICATION [None]
  - ENDOTRACHEAL INTUBATION [None]
  - SPINAL FRACTURE [None]
  - BACK PAIN [None]
  - THROMBOSIS [None]
  - BREAST MASS [None]
  - PAIN IN EXTREMITY [None]
  - JOINT DISLOCATION [None]
  - HYPOKINESIA [None]
  - INSOMNIA [None]
  - FALL [None]
  - MUSCLE RUPTURE [None]
